FAERS Safety Report 8316675-0 (Version None)
Quarter: 2012Q2

REPORT INFORMATION
  Report Type: 
  Country: None (occurrence: None)
  Receive Date: 20120427
  Receipt Date: 20120425
  Transmission Date: 20120825
  Serious: Yes (Other)
  Sender: FDA-Public Use
  Company Number: PHHY2011DE101308

PATIENT
  Age: 55 Year
  Sex: Female

DRUGS (1)
  1. ZOMETA [Suspect]
     Dosage: 4 MG/ 100 ML ONCE IN EVERY 4 WEEKS
     Route: 042
     Dates: start: 20040501

REACTIONS (7)
  - BONE LESION [None]
  - OSTEOMYELITIS [None]
  - OSTEONECROSIS OF JAW [None]
  - GINGIVAL SWELLING [None]
  - PAIN IN JAW [None]
  - GINGIVAL INFECTION [None]
  - SOFT TISSUE INFECTION [None]
